FAERS Safety Report 7137744-7 (Version None)
Quarter: 2010Q4

REPORT INFORMATION
  Report Type: 
  Country: None (occurrence: None)
  Receive Date: 20101119
  Receipt Date: 20091001
  Transmission Date: 20110411
  Serious: Yes (Other)
  Sender: FDA-Public Use
  Company Number: 2009AP003445

PATIENT
  Sex: Female

DRUGS (2)
  1. DILT-CD [Suspect]
     Indication: HEART RATE IRREGULAR
     Dosage: 120 MG; PO
     Route: 048
  2. DILTIAZEM HYDROCHLORIDE [Concomitant]

REACTIONS (2)
  - OFF LABEL USE [None]
  - SICK SINUS SYNDROME [None]
